FAERS Safety Report 18640981 (Version 2)
Quarter: 2021Q1

REPORT INFORMATION
  Report Type: Spontaneous
  Country: US (occurrence: US)
  Receive Date: 20201221
  Receipt Date: 20210215
  Transmission Date: 20210419
  Serious: No
  Sender: FDA-Public Use
  Company Number: US-CELLTRION INC.-2020US031867

PATIENT

DRUGS (2)
  1. TRUXIMA [Suspect]
     Active Substance: RITUXIMAB-ABBS
     Indication: NEUROSIS
     Dosage: 1 G, ONCE
     Dates: start: 20201030
  2. TRUXIMA [Suspect]
     Active Substance: RITUXIMAB-ABBS
     Indication: ARTHRITIS
     Dosage: 1 G, ONCE
     Dates: start: 20201113

REACTIONS (1)
  - Off label use [Unknown]
